FAERS Safety Report 25726661 (Version 2)
Quarter: 2025Q4

REPORT INFORMATION
  Report Type: Spontaneous
  Country: US (occurrence: US)
  Receive Date: 20250826
  Receipt Date: 20251003
  Transmission Date: 20260117
  Serious: No
  Sender: LUPIN
  Company Number: US-LUPIN PHARMACEUTICALS INC.-2025-07495

PATIENT
  Age: 54 Year
  Weight: 97.506 kg

DRUGS (1)
  1. AMLODIPINE BESYLATE\BENAZEPRIL HYDROCHLORIDE [Suspect]
     Active Substance: AMLODIPINE BESYLATE\BENAZEPRIL HYDROCHLORIDE
     Indication: Hypertension
     Dosage: UNK, QD
     Route: 065

REACTIONS (4)
  - Nausea [Unknown]
  - Malaise [Unknown]
  - Throat irritation [Unknown]
  - Product odour abnormal [Unknown]
